FAERS Safety Report 25607121 (Version 1)
Quarter: 2025Q3

REPORT INFORMATION
  Report Type: Spontaneous
  Country: US (occurrence: None)
  Receive Date: 20250724
  Receipt Date: 20250724
  Transmission Date: 20251021
  Serious: Yes (Disabling)
  Sender: FDA-CTU
  Company Number: None

PATIENT
  Age: 65 Year
  Sex: Male
  Weight: 90 kg

DRUGS (41)
  1. JOURNAVX [Suspect]
     Active Substance: SUZETRIGINE
     Indication: Bone pain
     Dosage: 1 ATABLET(S) TWICE A DAY ORAL
     Route: 048
     Dates: start: 20250723, end: 20250723
  2. Antigens [Concomitant]
  3. GABAPENTIN [Concomitant]
     Active Substance: GABAPENTIN
  4. OXYCODONE [Concomitant]
     Active Substance: OXYCODONE
  5. SINGULAIR [Concomitant]
     Active Substance: MONTELUKAST SODIUM
  6. GAMUNEX-C [Concomitant]
     Active Substance: HUMAN IMMUNOGLOBULIN G
  7. Opzelura cream [Concomitant]
  8. ERYTHROMYCIN GEL [Concomitant]
     Active Substance: ERYTHROMYCIN
  9. EDEX [Concomitant]
     Active Substance: ALPROSTADIL
  10. DEXILANT [Concomitant]
     Active Substance: DEXLANSOPRAZOLE
  11. LATANOPROST [Concomitant]
     Active Substance: LATANOPROST
  12. Ophth Soln [Concomitant]
  13. LISINOPRIL [Concomitant]
     Active Substance: LISINOPRIL
  14. MAXZIDE [Concomitant]
     Active Substance: HYDROCHLOROTHIAZIDE\TRIAMTERENE
  15. TOPROL XL [Concomitant]
     Active Substance: METOPROLOL SUCCINATE
  16. LIPITOR [Concomitant]
     Active Substance: ATORVASTATIN CALCIUM
  17. VASCEPA [Concomitant]
     Active Substance: ICOSAPENT ETHYL
  18. TESTOSTERONE [Concomitant]
     Active Substance: TESTOSTERONE
  19. ESTRADIOL CYPIONATE [Concomitant]
     Active Substance: ESTRADIOL CYPIONATE
  20. TRAZODONE [Concomitant]
     Active Substance: TRAZODONE HYDROCHLORIDE
  21. BENZOYL PEROXIDE [Concomitant]
     Active Substance: BENZOYL PEROXIDE
  22. AZELASTINE [Concomitant]
     Active Substance: AZELASTINE
  23. BUDESONIDE [Concomitant]
     Active Substance: BUDESONIDE
  24. MUCINEX [Concomitant]
     Active Substance: GUAIFENESIN
  25. ZYRTEC [Concomitant]
     Active Substance: CETIRIZINE HYDROCHLORIDE
  26. COENZYME Q10 [Concomitant]
     Active Substance: DIETARY SUPPLEMENT\UBIDECARENONE
  27. VITAMIN D3 [Concomitant]
     Active Substance: CHOLECALCIFEROL
  28. NAPROXEN [Concomitant]
     Active Substance: NAPROXEN
  29. TYLENOL [Concomitant]
     Active Substance: ACETAMINOPHEN
  30. METAMUCIL [Concomitant]
     Active Substance: PLANTAGO SEED
  31. CITRUCEL [Concomitant]
     Active Substance: METHYLCELLULOSE (4000 CPS)
  32. COLACE [Concomitant]
     Active Substance: DOCUSATE SODIUM
  33. MAGNESIUM OXIDE [Concomitant]
     Active Substance: MAGNESIUM OXIDE
  34. Domeboro Vanicream Moisturizing Cream [Concomitant]
  35. Semenax [Concomitant]
  36. BIOFLAVONOIDS [Concomitant]
     Active Substance: BIOFLAVONOIDS
  37. ZINC [Concomitant]
     Active Substance: ZINC
  38. CHONDROITIN [Concomitant]
     Active Substance: CHONDROITIN
  39. GLUCOSAMINE [Concomitant]
     Active Substance: GLUCOSAMINE
  40. Centrum multi-vitamin [Concomitant]
  41. BIOTIN [Concomitant]
     Active Substance: BIOTIN

REACTIONS (1)
  - Neuropathy peripheral [None]

NARRATIVE: CASE EVENT DATE: 20250723
